FAERS Safety Report 5865402-5 (Version None)
Quarter: 2008Q3

REPORT INFORMATION
  Report Type: 
  Country: None (occurrence: None)
  Receive Date: 20080829
  Receipt Date: 20080731
  Transmission Date: 20090109
  Serious: No
  Sender: FDA-Public Use
  Company Number: US-ABBOTT-08P-163-0467482-00

PATIENT
  Sex: Female
  Weight: 74.456 kg

DRUGS (10)
  1. SIMCOR [Suspect]
     Indication: BLOOD CHOLESTEROL INCREASED
     Dosage: 500/20 MILLIGRAMS AT NIGHT
     Route: 048
     Dates: start: 20080526
  2. SIMCOR [Suspect]
     Indication: DIABETES MELLITUS
  3. GENEVIENE [Concomitant]
     Indication: DIABETES MELLITUS MANAGEMENT
     Route: 048
     Dates: start: 20070101
  4. FELODIPINE [Concomitant]
     Indication: HYPERTENSION
     Route: 048
     Dates: start: 20070101
  5. AVOLIDE [Concomitant]
     Indication: BLOOD PRESSURE
     Dosage: 300/12.5 MILLIGRAMS DAILY
     Route: 048
     Dates: start: 19980101
  6. AVOLIDE [Concomitant]
     Indication: DIURETIC THERAPY
  7. GLIMPERIDE [Concomitant]
     Indication: DIABETES MELLITUS MANAGEMENT
     Dosage: 2 MILLIGRAMS AM 3 MILLIGRAMS AT NIGHT
     Route: 048
     Dates: start: 20080101
  8. EZETIMIBE [Concomitant]
     Indication: BLOOD CHOLESTEROL
     Route: 048
     Dates: start: 20070101
  9. ATENOLOL [Concomitant]
     Indication: BLOOD PRESSURE
     Route: 048
     Dates: start: 20030101
  10. ASPIRIN [Concomitant]
     Indication: PROPHYLAXIS
     Route: 048
     Dates: start: 20080501

REACTIONS (1)
  - BLOOD GLUCOSE INCREASED [None]
